FAERS Safety Report 8034179-X (Version None)
Quarter: 2012Q1

REPORT INFORMATION
  Report Type: 
  Country: None (occurrence: None)
  Receive Date: 20120110
  Receipt Date: 20120109
  Transmission Date: 20120608
  Serious: No
  Sender: FDA-Public Use
  Company Number: US-B.I. PHARMACEUTICALS,INC./RIDGEFIELD-2012-BP-00460BP

PATIENT
  Sex: Male

DRUGS (2)
  1. DIOVAN [Concomitant]
     Indication: HYPERTENSION
  2. TRADJENTA [Suspect]
     Indication: TYPE 2 DIABETES MELLITUS
     Dosage: 5 MG
     Route: 048
     Dates: start: 20120101, end: 20120101

REACTIONS (2)
  - HEADACHE [None]
  - DIZZINESS [None]
